FAERS Safety Report 7879920-1 (Version None)
Quarter: 2011Q4

REPORT INFORMATION
  Report Type: 
  Country: None (occurrence: None)
  Receive Date: 20111101
  Receipt Date: 20111026
  Transmission Date: 20120403
  Serious: Yes (Death, Other)
  Sender: FDA-Public Use
  Company Number: US-PFIZER INC-2011242543

PATIENT
  Sex: Female

DRUGS (31)
  1. DUREZOL [Concomitant]
     Dosage: 1 DROP IN LEFT EYE, FOUR TIMES A DAY
     Route: 047
     Dates: start: 20100825
  2. POTASSIUM CHLORIDE [Concomitant]
     Dosage: 2 TO 3 TABLETS 3X DAILY BASED ON LABS AS DIRECTED
     Route: 048
     Dates: start: 20041029
  3. WARFARIN [Concomitant]
     Dosage: 1 TABLET ALL OTHER DAYS
  4. INSULIN INJECTION [Concomitant]
     Indication: BLOOD GLUCOSE INCREASED
     Dosage: ONE SYRINGE UP TO 5 TIMES DAY
     Dates: start: 20080603
  5. LANTUS [Concomitant]
     Dosage: 60 UNIT DAILY
     Route: 058
     Dates: start: 20070606
  6. OXYGEN [Concomitant]
     Dosage: 2 L/M, AS NEEDED
     Dates: start: 20081002
  7. TORSEMIDE [Concomitant]
     Indication: FLUID RETENTION
     Dosage: UNK
     Route: 048
     Dates: start: 20110724
  8. WARFARIN [Concomitant]
     Dosage: 1 AND 1/2 TABLETS ON TUESDAY
     Route: 048
     Dates: start: 20040823
  9. ACETAMINOPHEN AND HYDROCODONE BITARTRATE [Concomitant]
     Indication: BACK PAIN
     Dosage: 1 TABLET ORAL EVERY 6 TO 8 HOURS AS NEEDED
     Route: 048
     Dates: start: 20110404
  10. ACETAMINOPHEN [Concomitant]
     Indication: ARTHRITIS
     Dosage: UNK
     Route: 048
     Dates: start: 20100518
  11. FLONASE [Concomitant]
     Dosage: 2 SPRAYS IN EACH NOSTRIL ONCE DAILY
     Dates: start: 20041201
  12. ALLOPURINOL [Concomitant]
     Indication: PROPHYLAXIS
     Dosage: 1 TABLET DAILY
     Route: 048
     Dates: start: 20100124
  13. PROVENTIL SOLUTION [Concomitant]
     Dosage: 2 PUFFS FOUR TIMES DAILY
     Route: 055
     Dates: start: 20071129
  14. RANITIDINE [Concomitant]
     Indication: GASTROOESOPHAGEAL REFLUX DISEASE
     Dosage: 1 TABLET EVERY 12 HOURS AS NEEDED
     Route: 048
     Dates: start: 20090409
  15. TRIAMCINOLONE ACETONIDE [Concomitant]
     Indication: PRURITUS
     Dosage: 0.025%, ONCE OR TWICE A DAY UNTIL RELIEVED
     Route: 061
     Dates: start: 20101119
  16. VENTAVIS [Concomitant]
     Dosage: 6 TIMES A DAY
     Route: 055
     Dates: start: 20080910
  17. ZOLPIDEM TARTRATE [Concomitant]
     Indication: INSOMNIA
     Dosage: 1 TABLET AS NEEDED
     Route: 048
     Dates: start: 20101209
  18. CETIRIZINE [Concomitant]
     Indication: HYPERSENSITIVITY
     Dosage: 1 TABLET AT BEDTIME, AS NEEDED
     Route: 048
     Dates: start: 20110816
  19. CRESTOR [Concomitant]
     Dosage: 1 TABLET DAILY
     Route: 048
     Dates: start: 20050303
  20. INSULIN INJECTION [Concomitant]
     Dosage: 30G X 5/16 1 M/L MISC
     Dates: start: 20090723
  21. ZYRTEC [Concomitant]
     Indication: PRURITUS
     Dosage: 1 CAPSULE DAILY
     Dates: start: 20101119
  22. METOLAZONE [Concomitant]
     Dosage: 1 TABLET OTHER 30 MINUTES PRIOR TO INTAKE OF BUMEX
     Route: 048
     Dates: start: 20041123
  23. VITAMIN D [Concomitant]
     Dosage: 1 TABLET DAILY
     Route: 048
     Dates: start: 20100716
  24. XIBROM [Concomitant]
     Dosage: UNK
     Dates: start: 20100825
  25. REVATIO [Suspect]
     Indication: PULMONARY HYPERTENSION
     Dosage: 20 MG, 3X/DAY
     Route: 048
     Dates: start: 20060719
  26. ADVAIR DISKUS 100/50 [Concomitant]
     Dosage: ONE INHALATION TWICE A DAY
     Route: 055
     Dates: start: 20060526
  27. ALBUTEROL [Concomitant]
     Dosage: ONE UNIT DOSE EVERY 4, AS NEEDED
     Route: 055
  28. CETIRIZINE [Concomitant]
     Indication: PRURITUS
  29. FERROUS SULFATE [Concomitant]
     Dosage: 1 TABLET DAILY
     Route: 048
     Dates: start: 20060809
  30. GABAPENTIN [Concomitant]
     Indication: NEUROPATHY PERIPHERAL
     Dosage: 1 CAPSULE, THREE TIMES A DAY
     Route: 048
     Dates: start: 20110208
  31. TRIAMCINOLONE ACETONIDE [Concomitant]
     Dosage: 0.1 %, ONCE OR TWICE A DAY
     Route: 061
     Dates: start: 20110830

REACTIONS (1)
  - DEATH [None]
